FAERS Safety Report 7129971-X (Version None)
Quarter: 2010Q4

REPORT INFORMATION
  Report Type: 
  Country: None (occurrence: None)
  Receive Date: 20101130
  Receipt Date: 20101126
  Transmission Date: 20110411
  Serious: Yes (Death)
  Sender: FDA-Public Use
  Company Number: ZA-BRISTOL-MYERS SQUIBB COMPANY-15401201

PATIENT
  Age: 8 Month
  Sex: Female
  Weight: 4 kg

DRUGS (10)
  1. CIPROFLOXACIN [Suspect]
     Indication: TUBERCULOSIS
  2. AMIKACIN SULFATE [Suspect]
     Indication: TUBERCULOSIS
  3. ETHAMBUTOL HYDROCHLORIDE [Suspect]
     Indication: TUBERCULOSIS
  4. ISONIAZID [Suspect]
     Indication: TUBERCULOSIS
  5. RIFAMPICIN [Suspect]
     Indication: TUBERCULOSIS
  6. RITONAVIR [Suspect]
     Indication: ANTIRETROVIRAL THERAPY
  7. ZIDOVUDINE [Suspect]
     Indication: ANTIRETROVIRAL THERAPY
  8. LAMIVUDINE [Suspect]
     Indication: ANTIRETROVIRAL THERAPY
  9. LOPINAVIR [Suspect]
     Indication: ANTIRETROVIRAL THERAPY
  10. PYRAZINAMIDE [Concomitant]
     Indication: TUBERCULOSIS

REACTIONS (2)
  - HAEMORRHAGE [None]
  - HEPATIC FAILURE [None]
